FAERS Safety Report 7120617-3 (Version None)
Quarter: 2010Q4

REPORT INFORMATION
  Report Type: 
  Country: None (occurrence: None)
  Receive Date: 20101124
  Receipt Date: 20101111
  Transmission Date: 20110411
  Serious: Yes (Other)
  Sender: FDA-Public Use
  Company Number: BR-RANBAXY-2010RR-39143

PATIENT
  Age: 24 Year
  Sex: Female

DRUGS (1)
  1. SERTRALINE HYDROCHLORIDE [Suspect]
     Indication: DEPRESSIVE SYMPTOM
     Dosage: 50 MG, UNK
     Route: 048

REACTIONS (2)
  - MYDRIASIS [None]
  - PUPILS UNEQUAL [None]
